FAERS Safety Report 16867058 (Version 2)
Quarter: 2019Q4

REPORT INFORMATION
  Report Type: Spontaneous
  Country: US (occurrence: US)
  Receive Date: 20190930
  Receipt Date: 20191230
  Transmission Date: 20200122
  Serious: Yes (Hospitalization, Other)
  Sender: FDA-Public Use
  Company Number: US-ADVANZ PHARMA-GSH201807-002707

PATIENT

DRUGS (1)
  1. HYDROXYCHLOROQUINE [Suspect]
     Active Substance: HYDROXYCHLOROQUINE
     Dosage: 36 G
     Route: 065

REACTIONS (8)
  - Overdose [Recovered/Resolved]
  - Arrhythmia [Recovered/Resolved]
  - Electrocardiogram QT prolonged [Recovered/Resolved]
  - Hypokalaemia [Recovered/Resolved]
  - Ventricular tachycardia [Recovered/Resolved]
  - Hypotension [Recovered/Resolved]
  - Mental impairment [Recovered/Resolved]
  - Toxicity to various agents [Recovered/Resolved]
